FAERS Safety Report 5867363-1 (Version None)
Quarter: 2008Q3

REPORT INFORMATION
  Report Type: 
  Country: None (occurrence: None)
  Receive Date: 20080902
  Receipt Date: 20080822
  Transmission Date: 20090109
  Serious: Yes (Other)
  Sender: FDA-Public Use
  Company Number: PHBS2008US05505

PATIENT
  Age: 29 Year
  Sex: Female

DRUGS (9)
  1. OXYTOCIN [Suspect]
  2. LABETALOL HCL [Concomitant]
     Dosage: 100 MG, BID
  3. MAGNESIUM SULFATE [Concomitant]
     Dosage: 4 G, UNK
     Route: 042
  4. SODIUM CITRATE [Concomitant]
     Dosage: 30 ML, UNK
     Route: 048
  5. CLINDAMYCIN HCL [Concomitant]
     Dosage: 900 MG, UNK
  6. FAMOTIDINE [Concomitant]
     Dosage: 20 MG, UNK
     Route: 042
  7. BUPIVACAINE [Concomitant]
  8. FENTANYL-25 [Concomitant]
     Dosage: 25 UG, UNK
  9. MORPHINE [Concomitant]
     Dosage: 200 UG, UNK

REACTIONS (4)
  - CARDIAC OUTPUT INCREASED [None]
  - MEAN ARTERIAL PRESSURE DECREASED [None]
  - STROKE VOLUME INCREASED [None]
  - VASCULAR RESISTANCE SYSTEMIC DECREASED [None]
